FAERS Safety Report 4923498-9 (Version None)
Quarter: 2006Q1

REPORT INFORMATION
  Report Type: 
  Country: None (occurrence: None)
  Receive Date: 20060227
  Receipt Date: 20060215
  Transmission Date: 20060701
  Serious: Yes (Death, Other)
  Sender: FDA-Public Use
  Company Number: PHBS2006NL02500

PATIENT
  Sex: Female

DRUGS (1)
  1. STALEVO 100 [Suspect]
     Route: 048

REACTIONS (2)
  - DEATH [None]
  - SUICIDAL IDEATION [None]
